FAERS Safety Report 23293541 (Version 2)
Quarter: 2024Q4

REPORT INFORMATION
  Report Type: Spontaneous
  Country: US (occurrence: US)
  Receive Date: 20231213
  Receipt Date: 20241213
  Transmission Date: 20250115
  Serious: No
  Sender: NOVO NORDISK
  Company Number: US-NOVOPROD-1113252

PATIENT
  Age: 75 Year
  Sex: Female

DRUGS (1)
  1. LEVEMIR [Suspect]
     Active Substance: INSULIN DETEMIR
     Indication: Type 2 diabetes mellitus
     Dosage: 38 IU, BID
     Route: 058
     Dates: start: 2004

REACTIONS (4)
  - Arthritis [Unknown]
  - Injection site haemorrhage [Recovered/Resolved]
  - Hypoacusis [Not Recovered/Not Resolved]
  - Wrong device used [Unknown]

NARRATIVE: CASE EVENT DATE: 20140101
